FAERS Safety Report 7649729-2 (Version None)
Quarter: 2011Q3

REPORT INFORMATION
  Report Type: 
  Country: None (occurrence: None)
  Receive Date: 20110802
  Receipt Date: 20110721
  Transmission Date: 20111222
  Serious: Yes (Hospitalization, Other)
  Sender: FDA-Public Use
  Company Number: FR-KINGPHARMUSA00001-K201100848

PATIENT
  Age: 80 Year
  Sex: Female

DRUGS (10)
  1. NEURONTIN [Concomitant]
  2. LANTUS [Concomitant]
  3. TEGRETOL [Concomitant]
  4. SERC [Concomitant]
  5. URBANYL [Concomitant]
  6. ALLOPURINOL [Concomitant]
  7. ALTACE [Suspect]
     Dosage: 1 DF, QD
     Route: 048
     Dates: end: 20101125
  8. BISOPROLOL FUMARATE [Concomitant]
  9. LEVOTHYROXINE SODIUM [Concomitant]
  10. FUROSEMIDE [Suspect]
     Dosage: 3 DF, QD
     Route: 048
     Dates: start: 20100901

REACTIONS (7)
  - GAIT DISTURBANCE [None]
  - ASTHENIA [None]
  - CARDIAC FAILURE [None]
  - DRUG INTERACTION [None]
  - RENAL FAILURE ACUTE [None]
  - BRONCHITIS [None]
  - BEDRIDDEN [None]
